FAERS Safety Report 5140554-3 (Version None)
Quarter: 2006Q4

REPORT INFORMATION
  Report Type: 
  Country: None (occurrence: None)
  Receive Date: 20061025
  Receipt Date: 20061012
  Transmission Date: 20070319
  Serious: No
  Sender: FDA-Public Use
  Company Number: 2002122911CH

PATIENT

DRUGS (3)
  1. MYCOBUTIN [Suspect]
     Indication: MYCOBACTERIUM AVIUM COMPLEX INFECTION
     Dosage: 450 MG (1 IN 1 D) ORAL
     Route: 048
  2. CLARITHROMYCIN [Suspect]
     Indication: MYCOBACTERIUM AVIUM COMPLEX INFECTION
     Dosage: 1000 MG (500 MG, 1 IN 1 D) ORAL
     Route: 048
  3. CLOFAZIMINE (CLOFAZIMINE) [Suspect]
     Indication: MYCOBACTERIUM AVIUM COMPLEX INFECTION
     Dosage: 100 MG (1 IN 1 D) ORAL
     Route: 048

REACTIONS (11)
  - ACQUIRED IMMUNODEFICIENCY SYNDROME [None]
  - BLOOD AMYLASE INCREASED [None]
  - DIARRHOEA [None]
  - DISEASE PROGRESSION [None]
  - DRUG TOXICITY [None]
  - GASTROINTESTINAL PAIN [None]
  - HEPATIC ENZYME INCREASED [None]
  - LEUKOPENIA [None]
  - NAUSEA [None]
  - RASH [None]
  - VOMITING [None]
